FAERS Safety Report 7474165-1 (Version None)
Quarter: 2011Q2

REPORT INFORMATION
  Report Type: 
  Country: None (occurrence: None)
  Receive Date: 20110511
  Receipt Date: 20110506
  Transmission Date: 20111010
  Serious: Yes (Death)
  Sender: FDA-Public Use
  Company Number: PHHY2011FR31825

PATIENT
  Sex: Female

DRUGS (7)
  1. FLUORESCEIN SODIUM [Suspect]
     Indication: MYDRIASIS
     Dosage: UNK UKN, UNK
     Dates: start: 20110405
  2. MYDRIATICUM [Concomitant]
     Dosage: UNK UKN, UNK
  3. OXYBUPROCAINE [Concomitant]
     Indication: MYDRIASIS
     Dosage: UNK UKN, UNK
  4. SEVOFLURANE [Suspect]
     Indication: GENERAL ANAESTHESIA
     Dosage: UNK UKN, UNK
     Dates: start: 20110405
  5. ATARAX [Concomitant]
     Dosage: 15 MG, UNK
  6. NEO-SYNEPHRINOL [Suspect]
     Indication: MYDRIASIS
     Dosage: 1 DROP IN EACH EYE ONE TIME
     Dates: start: 20110405
  7. XALATAN [Concomitant]

REACTIONS (9)
  - CYANOSIS [None]
  - BRADYCARDIA [None]
  - HEART RATE DECREASED [None]
  - CONDUCTION DISORDER [None]
  - BLOOD PRESSURE DECREASED [None]
  - ACUTE PULMONARY OEDEMA [None]
  - CARDIAC ARREST [None]
  - CAROTID PULSE ABNORMAL [None]
  - HEART SOUNDS ABNORMAL [None]
